FAERS Safety Report 13064276 (Version 1)
Quarter: 2016Q4

REPORT INFORMATION
  Report Type: Spontaneous
  Country: US (occurrence: US)
  Receive Date: 20161223
  Receipt Date: 20161223
  Transmission Date: 20170207
  Serious: Yes (Life-Threatening)
  Sender: FDA-Public Use
  Company Number: None

PATIENT
  Age: 87 Year
  Sex: Female
  Weight: 67.5 kg

DRUGS (1)
  1. RECLAST [Suspect]
     Active Substance: ZOLEDRONIC ACID
     Indication: SENILE OSTEOPOROSIS
     Dosage: OTHER FREQUENCY:1;?
     Route: 041
     Dates: start: 20161101, end: 20161101

REACTIONS (2)
  - Dehydration [None]
  - Urinary tract infection [None]

NARRATIVE: CASE EVENT DATE: 20161101
